FAERS Safety Report 23677844 (Version 1)
Quarter: 2024Q1

REPORT INFORMATION
  Report Type: Other
  Country: US (occurrence: None)
  Receive Date: 20240327
  Receipt Date: 20240327
  Transmission Date: 20240409
  Serious: Yes (Hospitalization, Other)
  Sender: FDA-Public Use
  Company Number: US-ROCHE-3532331

PATIENT
  Age: 84 Year
  Sex: Female

DRUGS (3)
  1. VENCLEXTA [Suspect]
     Active Substance: VENETOCLAX
     Indication: Chronic lymphocytic leukaemia
     Route: 048
     Dates: start: 20230110, end: 20230110
  2. VENCLEXTA [Suspect]
     Active Substance: VENETOCLAX
     Indication: Thrombocytopenia
  3. GAZYVA [Suspect]
     Active Substance: OBINUTUZUMAB
     Indication: Product used for unknown indication
     Route: 065
     Dates: start: 20230110, end: 20230110

REACTIONS (24)
  - Platelet count abnormal [Unknown]
  - Pollakiuria [Not Recovered/Not Resolved]
  - Platelet count decreased [Not Recovered/Not Resolved]
  - Musculoskeletal pain [Unknown]
  - Discomfort [Recovering/Resolving]
  - Constipation [Not Recovered/Not Resolved]
  - Hypotension [Unknown]
  - Haemoglobin decreased [Unknown]
  - Contusion [Unknown]
  - White blood cell count decreased [Unknown]
  - Joint swelling [Unknown]
  - Sciatica [Unknown]
  - Neutrophil count increased [Unknown]
  - Dementia Alzheimer^s type [Unknown]
  - Abdominal pain upper [Unknown]
  - Asthenia [Unknown]
  - Arthralgia [Unknown]
  - Myalgia [Unknown]
  - Diarrhoea [Unknown]
  - Fatigue [Unknown]
  - Nausea [Unknown]
  - Abdominal distension [Unknown]
  - Chronic lymphocytic leukaemia [Unknown]
  - Memory impairment [Unknown]

NARRATIVE: CASE EVENT DATE: 20230310
